FAERS Safety Report 6864233-7 (Version None)
Quarter: 2010Q3

REPORT INFORMATION
  Report Type: 
  Country: None (occurrence: None)
  Receive Date: 20100720
  Receipt Date: 20100706
  Transmission Date: 20110219
  Serious: No
  Sender: FDA-Public Use
  Company Number: 015186

PATIENT
  Sex: Male
  Weight: 96.1 kg

DRUGS (1)
  1. KEPPRA [Suspect]
     Indication: CONVULSION
     Dosage: (500 MG BID ORAL)
     Route: 048
     Dates: start: 20100615, end: 20100617

REACTIONS (2)
  - INSOMNIA [None]
  - NIGHTMARE [None]
